FAERS Safety Report 4945705-9 (Version None)
Quarter: 2006Q1

REPORT INFORMATION
  Report Type: 
  Country: None (occurrence: None)
  Receive Date: 20060117
  Receipt Date: 20050915
  Transmission Date: 20060701
  Serious: Yes (Hospitalization)
  Sender: FDA-Public Use
  Company Number: A03200502938

PATIENT
  Age: 49 Year
  Sex: Male
  Weight: 61.2356 kg

DRUGS (1)
  1. PLAVIX [Suspect]
     Dosage: ORAL
     Route: 048
     Dates: end: 20050801

REACTIONS (1)
  - CEREBROVASCULAR ACCIDENT [None]
